FAERS Safety Report 8119293-2 (Version None)
Quarter: 2012Q1

REPORT INFORMATION
  Report Type: 
  Country: None (occurrence: None)
  Receive Date: 20120207
  Receipt Date: 20120126
  Transmission Date: 20120608
  Serious: Yes (Other)
  Sender: FDA-Public Use
  Company Number: US-ELI_LILLY_AND_COMPANY-US201201009170

PATIENT
  Age: 48 Year
  Sex: Female

DRUGS (7)
  1. NORCO [Concomitant]
     Dosage: UNK, TID
  2. CYMBALTA [Suspect]
     Indication: MUSCULOSKELETAL PAIN
     Dosage: 30 MG, EACH EVENING
  3. CYMBALTA [Suspect]
     Dosage: UNK, UNKNOWN
  4. NEURONTIN                               /USA/ [Concomitant]
  5. LEVOTHYROXINE SODIUM [Concomitant]
  6. CYMBALTA [Suspect]
     Dosage: 60 MG, QD
  7. FENTANYL CITRATE [Concomitant]

REACTIONS (3)
  - FORMICATION [None]
  - DERMATILLOMANIA [None]
  - OPEN WOUND [None]
